FAERS Safety Report 6613830-2 (Version None)
Quarter: 2010Q1

REPORT INFORMATION
  Report Type: 
  Country: None (occurrence: None)
  Receive Date: 20100304
  Receipt Date: 20100225
  Transmission Date: 20100710
  Serious: Yes (Hospitalization)
  Sender: FDA-Public Use
  Company Number: JP-B.I. PHARMACEUTICALS,INC./RIDGEFIELD-2010-BP-02312NB

PATIENT
  Age: 45 Year
  Sex: Female

DRUGS (7)
  1. SPIRIVA [Suspect]
     Indication: CHRONIC OBSTRUCTIVE PULMONARY DISEASE
     Dosage: 18 MCG
     Route: 055
     Dates: start: 20090901
  2. CLARITH [Suspect]
     Indication: INFECTION
     Route: 048
     Dates: start: 20100203, end: 20100209
  3. ADOAIR [Concomitant]
     Route: 055
  4. HOKUNALIN:TAPE [Concomitant]
     Route: 062
  5. SAIBOKU-TO [Concomitant]
     Route: 048
  6. SINGULAIR [Concomitant]
     Route: 048
  7. EPHEDRA TEAS [Concomitant]
     Route: 048

REACTIONS (2)
  - ASTHMA [None]
  - DYSGEUSIA [None]
